FAERS Safety Report 12685269 (Version 1)
Quarter: 2016Q3

REPORT INFORMATION
  Report Type: Spontaneous
  Country: US (occurrence: US)
  Receive Date: 20160825
  Receipt Date: 20160825
  Transmission Date: 20161109
  Serious: Yes (Other)
  Sender: FDA-Public Use
  Company Number: PHHY2016US113523

PATIENT
  Age: 19 Year
  Sex: Male
  Weight: 72.56 kg

DRUGS (3)
  1. DOXYCYCLINE. [Suspect]
     Active Substance: DOXYCYCLINE
     Indication: LYME DISEASE
     Dosage: 100 MG, BID
     Route: 048
  2. SACCHAROMYCES BOULARDII [Concomitant]
     Active Substance: SACCHAROMYCES CEREVISIAE
     Indication: LYME DISEASE
     Dosage: 500 MG
     Route: 065
  3. PROBIOTIC COMPLEX [Concomitant]
     Indication: LYME DISEASE
     Dosage: 20 BILLION CFU
     Route: 065

REACTIONS (1)
  - Jarisch-Herxheimer reaction [Unknown]
